FAERS Safety Report 5682842-8 (Version None)
Quarter: 2008Q1

REPORT INFORMATION
  Report Type: 
  Country: None (occurrence: None)
  Receive Date: 20080327
  Receipt Date: 20080318
  Transmission Date: 20080703
  Serious: Yes (Life-Threatening, Hospitalization)
  Sender: FDA-Public Use
  Company Number: B0491510A

PATIENT
  Age: 64 Year
  Sex: Female

DRUGS (3)
  1. ALBENDAZOLE [Suspect]
     Route: 065
     Dates: start: 20070510
  2. MECTIZAN [Suspect]
     Dosage: 3TAB PER DAY
     Route: 065
     Dates: start: 20070510
  3. ANTIHYPERTENSIVE (UNSPECIFIED) [Concomitant]

REACTIONS (10)
  - CONJUNCTIVAL HYPERAEMIA [None]
  - DERMATITIS EXFOLIATIVE [None]
  - OEDEMA PERIPHERAL [None]
  - ORAL PAIN [None]
  - PALPITATIONS [None]
  - PITTING OEDEMA [None]
  - PRURITUS GENERALISED [None]
  - RASH [None]
  - STEVENS-JOHNSON SYNDROME [None]
  - VISION BLURRED [None]
